FAERS Safety Report 7045600-8 (Version None)
Quarter: 2010Q3

REPORT INFORMATION
  Report Type: 
  Country: None (occurrence: None)
  Receive Date: 20100929
  Receipt Date: 20100729
  Transmission Date: 20110219
  Serious: No
  Sender: FDA-Public Use
  Company Number: US-WYE-H16693710

PATIENT
  Age: 54 Year
  Sex: Female
  Weight: 72.64 kg

DRUGS (2)
  1. PRISTIQ [Suspect]
     Indication: DEPRESSION
     Dosage: 50 MG 1X PER 1 DAY, ORAL
     Route: 048
     Dates: start: 20100716
  2. THYROID TAB [Concomitant]

REACTIONS (2)
  - CONSTIPATION [None]
  - HYPERHIDROSIS [None]
